FAERS Safety Report 22296551 (Version 1)
Quarter: 2023Q2

REPORT INFORMATION
  Report Type: Spontaneous
  Country: US (occurrence: US)
  Receive Date: 20230508
  Receipt Date: 20230508
  Transmission Date: 20230721
  Serious: Yes (Other)
  Sender: FDA-Public Use
  Company Number: US-HQ SPECIALTY-US-2023INT000096

PATIENT
  Age: 71 Year
  Sex: Male

DRUGS (6)
  1. DEXMEDETOMIDINE HYDROCHLORIDE [Suspect]
     Active Substance: DEXMEDETOMIDINE HYDROCHLORIDE
     Indication: Light anaesthesia
     Dosage: 20 MICROGRAM
     Route: 042
  2. MEPIVACAINE [Suspect]
     Active Substance: MEPIVACAINE HYDROCHLORIDE
     Indication: Nerve block
     Dosage: 1.5 PERCENT/ML (20 MG)
     Route: 053
  3. PROPOFOL [Suspect]
     Active Substance: PROPOFOL
     Indication: Light anaesthesia
     Dosage: UNK
     Route: 042
  4. PROPOFOL [Suspect]
     Active Substance: PROPOFOL
     Indication: Sedative therapy
  5. KETAMINE [Suspect]
     Active Substance: KETAMINE
     Indication: Anaesthesia
     Dosage: 30 MG
     Route: 065
  6. KETAMINE [Suspect]
     Active Substance: KETAMINE
     Dosage: LATER, ADDITION OF KETAMINE
     Route: 065

REACTIONS (2)
  - Restless legs syndrome [Recovered/Resolved]
  - Therapeutic product effect variable [Unknown]
